FAERS Safety Report 4273570-4 (Version None)
Quarter: 2004Q1

REPORT INFORMATION
  Report Type: 
  Country: None (occurrence: None)
  Receive Date: 20040116
  Receipt Date: 20040116
  Transmission Date: 20041129
  Serious: Yes (Hospitalization)
  Sender: FDA-Public Use
  Company Number: None

PATIENT

DRUGS (1)
  1. FUROSEMIDE [Suspect]
     Dosage: 40 MG PO BID
     Route: 048

REACTIONS (2)
  - HYPOKALAEMIA [None]
  - TREATMENT NONCOMPLIANCE [None]
